FAERS Safety Report 8033384-6 (Version None)
Quarter: 2012Q1

REPORT INFORMATION
  Report Type: 
  Country: None (occurrence: None)
  Receive Date: 20120110
  Receipt Date: 20120109
  Transmission Date: 20120608
  Serious: Yes (Hospitalization)
  Sender: FDA-Public Use
  Company Number: PHEH2011US07451

PATIENT
  Sex: Male

DRUGS (4)
  1. EXJADE [Suspect]
     Indication: SICKLE CELL ANAEMIA
     Dosage: 1250 MG, DAILY
     Route: 048
     Dates: start: 20100305
  2. PERCOCET [Concomitant]
     Dosage: OXYCODONE HYDROCHLORIDE 10 MG / PARACETAMOL 650MG
     Dates: start: 20110218
  3. HYDROXYUREA [Concomitant]
     Dosage: 500 MG, UNK
     Dates: start: 20110218
  4. IBUPROFEN [Concomitant]
     Dosage: 800 MG, UNK
     Dates: start: 20110218

REACTIONS (3)
  - SICKLE CELL ANAEMIA WITH CRISIS [None]
  - MALAISE [None]
  - PAIN [None]
